FAERS Safety Report 4773734-7 (Version None)
Quarter: 2005Q3

REPORT INFORMATION
  Report Type: 
  Country: None (occurrence: None)
  Receive Date: 20050920
  Receipt Date: 20050909
  Transmission Date: 20060218
  Serious: Yes (Other)
  Sender: FDA-Public Use
  Company Number: US-GLAXOSMITHKLINE-A0573617A

PATIENT
  Age: 46 Year
  Sex: Female
  Weight: 78 kg

DRUGS (13)
  1. BC ARTHRITIS STRENGTH POWDER [Suspect]
     Indication: MIGRAINE
     Route: 048
     Dates: start: 20050101
  2. MORPHINE SULFATE [Concomitant]
     Indication: BACK PAIN
     Route: 048
  3. NEURONTIN [Concomitant]
     Indication: MIGRAINE
     Route: 048
  4. VERAPAMIL [Concomitant]
     Indication: BLOOD PRESSURE
     Route: 048
  5. ACTOS [Concomitant]
     Indication: BLOOD TRIGLYCERIDES
     Route: 048
  6. ZETIA [Concomitant]
     Indication: BLOOD CHOLESTEROL
     Route: 048
  7. ZOLOFT [Concomitant]
     Indication: POST-TRAUMATIC STRESS DISORDER
     Route: 048
  8. LEVOXYL [Concomitant]
     Indication: HYPOTHYROIDISM
     Route: 048
  9. NEXIUM [Concomitant]
     Indication: GASTRITIS EROSIVE
     Route: 048
  10. AVINZA [Concomitant]
     Indication: BACK PAIN
     Route: 048
  11. KLONOPIN [Concomitant]
     Indication: ANXIETY
     Route: 048
  12. FEVERFEW [Concomitant]
     Indication: MIGRAINE
     Route: 048
  13. HERBAL SUPPLEMENT [Concomitant]

REACTIONS (8)
  - ABDOMINAL PAIN UPPER [None]
  - BLOOD PRESSURE DECREASED [None]
  - DYSARTHRIA [None]
  - GAIT DISTURBANCE [None]
  - LOSS OF CONSCIOUSNESS [None]
  - SOMNOLENCE [None]
  - STUPOR [None]
  - THINKING ABNORMAL [None]
